FAERS Safety Report 14230685 (Version 1)
Quarter: 2017Q4

REPORT INFORMATION
  Report Type: Spontaneous
  Country: US (occurrence: US)
  Receive Date: 20171128
  Receipt Date: 20171128
  Transmission Date: 20180321
  Serious: No
  Sender: FDA-Public Use
  Company Number: US-ELI_LILLY_AND_COMPANY-US201504002595

PATIENT
  Sex: Female

DRUGS (3)
  1. CIALIS [Suspect]
     Active Substance: TADALAFIL
     Dosage: 5 MG, PRN
     Route: 048
  2. CIALIS [Suspect]
     Active Substance: TADALAFIL
     Indication: PULMONARY ARTERIAL HYPERTENSION
     Dosage: 5 MG, QD
     Route: 048
     Dates: start: 2011
  3. CIALIS [Suspect]
     Active Substance: TADALAFIL
     Dosage: 2.5 MG, PRN
     Route: 048

REACTIONS (3)
  - Headache [Recovered/Resolved]
  - Inappropriate schedule of drug administration [Unknown]
  - Off label use [Unknown]
